FAERS Safety Report 7429053-3 (Version None)
Quarter: 2011Q2

REPORT INFORMATION
  Report Type: 
  Country: None (occurrence: None)
  Receive Date: 20110421
  Receipt Date: 20110407
  Transmission Date: 20111010
  Serious: Yes (Death, Disabling)
  Sender: FDA-Public Use
  Company Number: EC-ROCHE-770052

PATIENT
  Sex: Female
  Weight: 53.1 kg

DRUGS (2)
  1. BONIVA [Suspect]
     Indication: OSTEOPOROSIS
     Route: 048
     Dates: start: 20100317
  2. LEVOTHYROXINE SODIUM [Concomitant]
     Indication: HYPOTHYROIDISM
     Dosage: DOSE: 0.5 UNIT NOT PROVIDED FREQUENCY:EVERY DAY
     Route: 048
     Dates: start: 20070101

REACTIONS (3)
  - RIB FRACTURE [None]
  - CARDIO-RESPIRATORY ARREST [None]
  - ROAD TRAFFIC ACCIDENT [None]
